FAERS Safety Report 13518703 (Version 1)
Quarter: 2017Q2

REPORT INFORMATION
  Report Type: Spontaneous
  Country: CA (occurrence: CA)
  Receive Date: 20170505
  Receipt Date: 20170505
  Transmission Date: 20170830
  Serious: Yes (Hospitalization)
  Sender: FDA-Public Use
  Company Number: CA-TEVA-765228ACC

PATIENT
  Age: 876 Month
  Sex: Female

DRUGS (13)
  1. WARFARIN [Suspect]
     Active Substance: WARFARIN
     Indication: CEREBROVASCULAR ACCIDENT PROPHYLAXIS
     Route: 048
  2. FERROUS GLUCONATE [Concomitant]
     Active Substance: FERROUS GLUCONATE
  3. SENOKOT [Concomitant]
     Active Substance: SENNOSIDES
  4. VALSARTAN. [Concomitant]
     Active Substance: VALSARTAN
  5. DIGOXIN. [Concomitant]
     Active Substance: DIGOXIN
  6. DOCUSATE SODIUM. [Concomitant]
     Active Substance: DOCUSATE SODIUM
  7. WARFARIN [Suspect]
     Active Substance: WARFARIN
     Route: 048
  8. ATORVASTATIN CALCIUM. [Concomitant]
     Active Substance: ATORVASTATIN CALCIUM
  9. LEVOTHYROXINE. [Concomitant]
     Active Substance: LEVOTHYROXINE
  10. METOPROLOL. [Concomitant]
     Active Substance: METOPROLOL
  11. POTASSIUM CHLORIDE. [Concomitant]
     Active Substance: POTASSIUM CHLORIDE
  12. FUROSEMIDE. [Concomitant]
     Active Substance: FUROSEMIDE
  13. CENTRUM TABLETS [Concomitant]

REACTIONS (1)
  - Haemangioma [Recovered/Resolved]
